FAERS Safety Report 21739383 (Version 3)
Quarter: 2023Q1

REPORT INFORMATION
  Report Type: Report from Study
  Country: JP (occurrence: JP)
  Receive Date: 20221216
  Receipt Date: 20230120
  Transmission Date: 20230418
  Serious: Yes (Other)
  Sender: FDA-Public Use
  Company Number: JP-ViiV Healthcare Limited-JP2022GSK186891

PATIENT

DRUGS (3)
  1. ABACAVIR SULFATE\LAMIVUDINE [Suspect]
     Active Substance: ABACAVIR SULFATE\LAMIVUDINE
     Indication: HIV infection
     Dosage: 1 DF, QD
     Route: 064
     Dates: start: 20201112, end: 20201210
  2. RITONAVIR [Suspect]
     Active Substance: RITONAVIR
     Indication: HIV infection
     Dosage: UNK
     Route: 064
     Dates: start: 20201112, end: 20201210
  3. DARUNAVIR [Suspect]
     Active Substance: DARUNAVIR
     Indication: HIV infection
     Dosage: 800 MG, QD
     Route: 064
     Dates: start: 20201112, end: 20201210

REACTIONS (2)
  - Anal abscess [Unknown]
  - Foetal exposure during pregnancy [Unknown]
